FAERS Safety Report 7692796-0 (Version None)
Quarter: 2011Q3

REPORT INFORMATION
  Report Type: 
  Country: None (occurrence: None)
  Receive Date: 20110815
  Receipt Date: 20110804
  Transmission Date: 20111222
  Serious: Yes (Death)
  Sender: FDA-Public Use
  Company Number: DKLU1072416

PATIENT

DRUGS (1)
  1. INDOCIN [Suspect]
     Indication: PATENT DUCTUS ARTERIOSUS
     Dosage: 0.1 MG/KG MILLIGRAM(S) / KILOGRAM, 3 DOSES AT 24-HOUR INTERVALS, INTRAVENOUS (NOT OTHERWISE SPECIFIE
     Route: 042

REACTIONS (1)
  - NECROTISING COLITIS [None]
